FAERS Safety Report 12870829 (Version 1)
Quarter: 2016Q4

REPORT INFORMATION
  Report Type: Spontaneous
  Country: SE (occurrence: SE)
  Receive Date: 20161021
  Receipt Date: 20161021
  Transmission Date: 20170207
  Serious: Yes (Other)
  Sender: FDA-Public Use
  Company Number: SE-TEVA-702148ROM

PATIENT
  Age: 29 Year
  Sex: Female

DRUGS (1)
  1. SERTRALINE [Suspect]
     Active Substance: SERTRALINE HYDROCHLORIDE

REACTIONS (4)
  - Anosmia [Not Recovered/Not Resolved]
  - Headache [Not Recovered/Not Resolved]
  - Anorexia nervosa [Not Recovered/Not Resolved]
  - Dry mouth [Not Recovered/Not Resolved]
